FAERS Safety Report 8480490-8 (Version None)
Quarter: 2012Q3

REPORT INFORMATION
  Report Type: 
  Country: None (occurrence: None)
  Receive Date: 20120702
  Receipt Date: 20120627
  Transmission Date: 20120928
  Serious: No
  Sender: FDA-Public Use
  Company Number: US-BIOGENIDEC-2012BI007963

PATIENT
  Age: 53 Year
  Sex: Female

DRUGS (1)
  1. TYSABRI [Suspect]
     Indication: MULTIPLE SCLEROSIS
     Route: 042
     Dates: start: 20120214

REACTIONS (9)
  - RESPIRATORY DISORDER [None]
  - DYSGEUSIA [None]
  - ARTHRALGIA [None]
  - HEADACHE [None]
  - MYALGIA [None]
  - DIARRHOEA [None]
  - ABDOMINAL DISTENSION [None]
  - FATIGUE [None]
  - PAIN [None]
